FAERS Safety Report 21323801 (Version 1)
Quarter: 2022Q3

REPORT INFORMATION
  Report Type: Spontaneous
  Country: US (occurrence: US)
  Receive Date: 20220912
  Receipt Date: 20220912
  Transmission Date: 20221026
  Serious: Yes (Other)
  Sender: FDA-Public Use
  Company Number: US-SA-SAC20220912000569

PATIENT
  Sex: Male

DRUGS (1)
  1. ZANTAC [Suspect]
     Active Substance: RANITIDINE HYDROCHLORIDE
     Dosage: UNK,OVER THE COUNTER ZANTAC FROM APPROXIMATELY 2010 TO 2018
     Route: 048
     Dates: start: 2010, end: 2018

REACTIONS (1)
  - Prostate cancer [Unknown]
